FAERS Safety Report 7121830-1 (Version None)
Quarter: 2010Q4

REPORT INFORMATION
  Report Type: 
  Country: None (occurrence: None)
  Receive Date: 20101124
  Receipt Date: 20101117
  Transmission Date: 20110411
  Serious: Yes (Hospitalization)
  Sender: FDA-Public Use
  Company Number: NL-MEDIMMUNE-MEDI-0011664

PATIENT
  Sex: Female

DRUGS (1)
  1. SYNAGIS [Suspect]
     Route: 051
     Dates: start: 20100101, end: 20100916

REACTIONS (1)
  - OXYGEN SATURATION DECREASED [None]
